FAERS Safety Report 4676866-7 (Version None)
Quarter: 2005Q2

REPORT INFORMATION
  Report Type: 
  Country: None (occurrence: None)
  Receive Date: 20050527
  Receipt Date: 20050512
  Transmission Date: 20051028
  Serious: Yes (Hospitalization)
  Sender: FDA-Public Use
  Company Number: 2005BI009571

PATIENT
  Age: 53 Year
  Sex: Female
  Weight: 126.1 kg

DRUGS (9)
  1. AVONEX [Suspect]
     Indication: MULTIPLE SCLEROSIS
     Dosage: 30 UG; QW; IM
     Route: 030
     Dates: start: 20030101
  2. LITHIUM [Concomitant]
  3. CELEBREX [Concomitant]
  4. LAZANAPROL [Concomitant]
  5. ZYRTEC [Concomitant]
  6. LEVATOL [Concomitant]
  7. DETROL [Concomitant]
  8. KATOCREAM [Concomitant]
  9. CREAMS (NOS) [Concomitant]

REACTIONS (5)
  - CARDIAC ENZYMES INCREASED [None]
  - ELECTROCARDIOGRAM ABNORMAL [None]
  - INJECTION SITE HAEMORRHAGE [None]
  - PULMONARY THROMBOSIS [None]
  - THERAPEUTIC AGENT TOXICITY [None]
